FAERS Safety Report 8576348-6 (Version None)
Quarter: 2012Q3

REPORT INFORMATION
  Report Type: 
  Country: None (occurrence: None)
  Receive Date: 20120807
  Receipt Date: 20120803
  Transmission Date: 20120928
  Serious: Yes (Hospitalization, Other)
  Sender: FDA-Public Use
  Company Number: US-PFIZER INC-2012152466

PATIENT
  Age: 42 Year
  Sex: Female
  Weight: 48.98 kg

DRUGS (11)
  1. EFFEXOR XR [Suspect]
     Indication: DEPRESSION
     Dosage: 37.5 MG, 2X/DAY
     Route: 048
  2. LYRICA [Suspect]
     Indication: CONVULSION
     Dosage: 75 MG, 2X/DAY
     Route: 048
     Dates: start: 20070101, end: 20110501
  3. VILAZODONE [Concomitant]
     Dosage: 10 MG, 1X/DAY
  4. DOXEPIN [Concomitant]
     Dosage: 25 MG, 4X/DAY
  5. CLONAZEPAM [Concomitant]
     Dosage: 1.5 MG, DAILY
  6. KEPPRA [Concomitant]
     Dosage: 500 MG, 4X/DAY
  7. EFFEXOR XR [Suspect]
     Indication: CONVULSION
  8. LYRICA [Suspect]
     Indication: PAIN
  9. PRIMIDONE [Concomitant]
     Dosage: 100 MG, 2X/DAY
  10. OMEPRAZOLE [Concomitant]
     Dosage: 20 MG, 2X/DAY
  11. LYRICA [Suspect]
     Indication: TREMOR

REACTIONS (2)
  - ADRENAL INSUFFICIENCY [None]
  - CONVULSION [None]
